FAERS Safety Report 14743929 (Version 3)
Quarter: 2018Q2

REPORT INFORMATION
  Report Type: Report from Study
  Country: US (occurrence: US)
  Receive Date: 20180411
  Receipt Date: 20180420
  Transmission Date: 20180711
  Serious: Yes (Hospitalization, Other)
  Sender: FDA-Public Use
  Company Number: US-BEH-2018089451

PATIENT
  Age: 9 Year
  Sex: Male
  Weight: 31.75 kg

DRUGS (2)
  1. HIZENTRA [Suspect]
     Active Substance: HUMAN IMMUNOGLOBULIN G
     Dosage: UNK
     Route: 058
  2. HIZENTRA [Suspect]
     Active Substance: HUMAN IMMUNOGLOBULIN G
     Indication: PRIMARY IMMUNODEFICIENCY SYNDROME
     Dosage: 3 G, 29.56 ML/2 HR VIA PUMP
     Route: 058
     Dates: start: 20180326

REACTIONS (7)
  - Eye swelling [Recovered/Resolved]
  - Ocular hyperaemia [Recovered/Resolved]
  - Rash pruritic [Recovered/Resolved]
  - Eye pruritus [Recovered/Resolved]
  - Immunoglobulins decreased [Recovered/Resolved]
  - Urticaria [Recovered/Resolved]
  - Lacrimation increased [Recovered/Resolved]

NARRATIVE: CASE EVENT DATE: 20180331
